FAERS Safety Report 7996156-4 (Version None)
Quarter: 2011Q4

REPORT INFORMATION
  Report Type: 
  Country: None (occurrence: None)
  Receive Date: 20111220
  Receipt Date: 20111215
  Transmission Date: 20120403
  Serious: Yes (Death)
  Sender: FDA-Public Use
  Company Number: PHHY2011US25221

PATIENT
  Sex: Male

DRUGS (2)
  1. IRON [Concomitant]
     Dosage: 150 MG, BID
  2. GLEEVEC [Suspect]
     Indication: NEOPLASM MALIGNANT
     Dosage: 400 MG, DAILY
     Route: 048
     Dates: start: 20110225

REACTIONS (6)
  - WEIGHT DECREASED [None]
  - COMPLETED SUICIDE [None]
  - ANAEMIA [None]
  - DEPRESSION [None]
  - FATIGUE [None]
  - DECREASED APPETITE [None]
